FAERS Safety Report 24622786 (Version 2)
Quarter: 2025Q4

REPORT INFORMATION
  Report Type: Report from Study
  Country: US (occurrence: US)
  Receive Date: 20241115
  Receipt Date: 20251115
  Transmission Date: 20260117
  Serious: Yes (Other)
  Sender: AMNEAL
  Company Number: US-AMNEAL PHARMACEUTICALS-2024-AMRX-04081

PATIENT
  Sex: Male

DRUGS (8)
  1. CARBIDOPA\LEVODOPA [Suspect]
     Active Substance: CARBIDOPA\LEVODOPA
     Indication: Product used for unknown indication
     Dosage: 1 CAPSULES (36.25-145 MG), 4X/DAY
     Route: 048
  2. CARBIDOPA\LEVODOPA [Suspect]
     Active Substance: CARBIDOPA\LEVODOPA
     Dosage: 1 CAPSULES (36.25-145 MG), 5X/DAY (TAKE 1 CAPSULE BY MOUTH FIVE TIMES DAILY AT 7AM, 11:30AM, 4PM, 8P
     Route: 048
     Dates: start: 20240308
  3. CARBIDOPA\LEVODOPA [Suspect]
     Active Substance: CARBIDOPA\LEVODOPA
     Dosage: 36.25/145MG 01 CAPSULE BY MOUTH AT 7AM, 11:30AM AND 4PM; 02CAPSULES AT 8PM AND MIDNIGHT
     Route: 048
     Dates: start: 20240619
  4. CARBIDOPA\LEVODOPA [Suspect]
     Active Substance: CARBIDOPA\LEVODOPA
     Dosage: 9 CAPSULES, QD (36.25-145 02 CAPSULES BY MOUTH AT 7AM AND 11:30AM, TAKE 1 CAPSULE BY MOUTH AT 4PM, T
     Route: 048
     Dates: start: 20240826
  5. CARBIDOPA\LEVODOPA [Suspect]
     Active Substance: CARBIDOPA\LEVODOPA
     Dosage: 36.25/145MG 01 CAPSULE BY MOUTH AT 7AM, 11:30AM AND 4PM; 02 CAPSULES AT 8PM AND MIDNIGHT
     Route: 048
  6. CARBIDOPA\LEVODOPA [Suspect]
     Active Substance: CARBIDOPA\LEVODOPA
     Dosage: 36.25-145MG 1 CAPSULE AT 7AM, 10AM, 1PM, 4PM, 7PM, AND MIDNIGHT
     Route: 048
     Dates: start: 20240927
  7. CARBIDOPA\LEVODOPA [Suspect]
     Active Substance: CARBIDOPA\LEVODOPA
     Dosage: 36.25-145MG, 2 CAPSULE AT 7AM, 11:30AM, 1 CAPSULE AT 4PM, 2 CAPSULE AT 8PM, AND MIDNIGHT
     Route: 048
     Dates: start: 20250312
  8. CARBIDOPA\LEVODOPA [Suspect]
     Active Substance: CARBIDOPA\LEVODOPA
     Dosage: 1 CAPSULES (36.25-145 MG), 4X/DAY
     Route: 048
     Dates: start: 20251104

REACTIONS (2)
  - Dementia Alzheimer^s type [Unknown]
  - Parkinson^s disease [Unknown]
